FAERS Safety Report 7320157-2 (Version None)
Quarter: 2011Q1

REPORT INFORMATION
  Report Type: 
  Country: None (occurrence: None)
  Receive Date: 20110228
  Receipt Date: 20110221
  Transmission Date: 20110831
  Serious: Yes (Other)
  Sender: FDA-Public Use
  Company Number: US-AMGEN-USASP2011010089

PATIENT
  Age: 60 Year
  Sex: Female

DRUGS (14)
  1. PREDNISONE [Concomitant]
     Dosage: 1 MG, UNK
  2. ENBREL [Suspect]
     Indication: RHEUMATOID ARTHRITIS
     Dosage: 50 MG, QWK
     Dates: start: 20090130, end: 20101129
  3. COUMADIN [Concomitant]
     Dosage: UNK
  4. CALCIUM [Concomitant]
     Dosage: UNK
  5. HYDROXYCHLOROQUINE [Concomitant]
     Dosage: 1 MG, UNK
  6. MULTIVITAMIN                       /00097801/ [Concomitant]
     Dosage: 1 UNK, UNK
  7. RITUXAN [Concomitant]
     Dosage: UNK
     Dates: start: 20101022
  8. METHOTREXATE [Concomitant]
     Dosage: 1 ML, UNK
  9. FOLIC ACID [Concomitant]
     Dosage: 1 MG, UNK
  10. COMPAZINE [Concomitant]
     Dosage: UNK
  11. ZOFRAN [Concomitant]
     Dosage: UNK
  12. VITAMIN B6 [Concomitant]
     Dosage: UNK
  13. EMEND                              /06343802/ [Concomitant]
     Dosage: UNK
  14. VITAMIN C                          /00008001/ [Concomitant]
     Dosage: UNK

REACTIONS (1)
  - LUNG NEOPLASM MALIGNANT [None]
